FAERS Safety Report 16836318 (Version 1)
Quarter: 2019Q3

REPORT INFORMATION
  Report Type: Report from Study
  Country: US (occurrence: US)
  Receive Date: 20190921
  Receipt Date: 20190921
  Transmission Date: 20191005
  Serious: No
  Sender: FDA-Public Use
  Company Number: PHHY2019US215037

PATIENT
  Age: 44 Year
  Sex: Female

DRUGS (1)
  1. GILENYA [Suspect]
     Active Substance: FINGOLIMOD HYDROCHLORIDE
     Indication: MULTIPLE SCLEROSIS
     Dosage: UNK
     Route: 065

REACTIONS (5)
  - Sleep apnoea syndrome [Unknown]
  - Melanocytic naevus [Unknown]
  - Acne [Unknown]
  - Fatigue [Unknown]
  - Benign neoplasm of skin [Unknown]

NARRATIVE: CASE EVENT DATE: 20190517
